FAERS Safety Report 9151038 (Version 1)
Quarter: 2013Q1

REPORT INFORMATION
  Report Type: Spontaneous
  Country: GB (occurrence: None)
  Receive Date: 20130201
  Receipt Date: 20130201
  Transmission Date: 20140127
  Serious: Yes (Other)
  Sender: FDA-Public Use
  Company Number: FK201300255

PATIENT
  Age: 65 Year
  Sex: Male

DRUGS (11)
  1. IRINOTECAN [Suspect]
     Indication: COLORECTAL CANCER METASTATIC
  2. OXALIPLATIN [Suspect]
     Indication: COLORECTAL CANCER METASTATIC
  3. FLUOROURACIL [Suspect]
     Indication: COLORECTAL CANCER METASTATIC
  4. FOLINIC ACID [Suspect]
     Indication: COLORECTAL CANCER METASTATIC
  5. AUGMENTIN [Concomitant]
  6. DEXAMETHASONE [Concomitant]
  7. LOPERAMIDE [Concomitant]
  8. METOCLOPRAMIDE [Concomitant]
  9. ONDANSETRON [Concomitant]
  10. PIRITON (CHLORPHENAMINE MALEATE) [Concomitant]
  11. PREDNISOLONE [Concomitant]

REACTIONS (15)
  - Anaemia [None]
  - Constipation [None]
  - Diarrhoea [None]
  - Epistaxis [None]
  - Pruritus [None]
  - Lethargy [None]
  - Lip ulceration [None]
  - Mucosal inflammation [None]
  - Neuropathy peripheral [None]
  - Neutrophil count decreased [None]
  - Oedema peripheral [None]
  - Pruritus [None]
  - Dyspnoea [None]
  - Lacrimation increased [None]
  - Haemorrhage [None]
